FAERS Safety Report 18530434 (Version 1)
Quarter: 2020Q4

REPORT INFORMATION
  Report Type: Other
  Country: GB (occurrence: GB)
  Receive Date: 20201120
  Receipt Date: 20201120
  Transmission Date: 20210114
  Serious: No
  Sender: FDA-Public Use
  Company Number: GB-LUPIN PHARMACEUTICALS INC.-2020-07117

PATIENT
  Age: 45 Year
  Sex: Male
  Weight: 98 kg

DRUGS (2)
  1. SERTRALINE [Suspect]
     Active Substance: SERTRALINE HYDROCHLORIDE
     Indication: PRODUCT USED FOR UNKNOWN INDICATION
     Dosage: 1 DOSAGE FORM, QD
     Route: 065
     Dates: start: 20200907
  2. MELATONIN [Concomitant]
     Active Substance: MELATONIN
     Indication: ILL-DEFINED DISORDER
     Dosage: 1 DOSAGE FORM, QD (NIGHT)
     Route: 065
     Dates: start: 20200910

REACTIONS (3)
  - Hypoaesthesia [Unknown]
  - Hot flush [Unknown]
  - Rash [Recovered/Resolved]

NARRATIVE: CASE EVENT DATE: 20200907
